FAERS Safety Report 6365526-2 (Version None)
Quarter: 2009Q3

REPORT INFORMATION
  Report Type: 
  Country: None (occurrence: None)
  Receive Date: 20090919
  Receipt Date: 20090816
  Transmission Date: 20100115
  Serious: No
  Sender: FDA-Public Use
  Company Number: US-ABBOTT-09P-163-0592068-00

PATIENT
  Sex: Male
  Weight: 72.64 kg

DRUGS (3)
  1. HUMIRA [Suspect]
     Indication: PSORIATIC ARTHROPATHY
     Route: 058
     Dates: start: 20030101
  2. MOBIC [Concomitant]
     Indication: PSORIATIC ARTHROPATHY
  3. METHOTREXATE [Concomitant]
     Indication: PSORIATIC ARTHROPATHY
     Dosage: 1/2 PILL, WEEKLY
     Route: 048
     Dates: end: 20090811

REACTIONS (5)
  - BACK PAIN [None]
  - GAIT DISTURBANCE [None]
  - HYPOKINESIA [None]
  - INTERVERTEBRAL DISC DEGENERATION [None]
  - JOINT RANGE OF MOTION DECREASED [None]
